FAERS Safety Report 16884595 (Version 2)
Quarter: 2019Q4

REPORT INFORMATION
  Report Type: Spontaneous
  Country: NA (occurrence: NA)
  Receive Date: 20191004
  Receipt Date: 20191010
  Transmission Date: 20200122
  Serious: Yes (Other)
  Sender: FDA-Public Use
  Company Number: NA-PFIZER INC-2019419922

PATIENT
  Age: 40 Year
  Sex: Male

DRUGS (2)
  1. DALACIN C [Suspect]
     Active Substance: CLINDAMYCIN PHOSPHATE
     Indication: SINUS DISORDER
  2. DALACIN C [Suspect]
     Active Substance: CLINDAMYCIN PHOSPHATE
     Indication: INFLUENZA
     Dosage: 150 MG, UNK
     Dates: start: 201909, end: 201909

REACTIONS (4)
  - Product use in unapproved indication [Unknown]
  - Hepatitis A [Recovered/Resolved]
  - Off label use [Unknown]
  - Malaise [Recovered/Resolved]
